FAERS Safety Report 7823044-6 (Version None)
Quarter: 2011Q4

REPORT INFORMATION
  Report Type: 
  Country: None (occurrence: None)
  Receive Date: 20111018
  Receipt Date: 20110517
  Transmission Date: 20120403
  Serious: No
  Sender: FDA-Public Use
  Company Number: US-ASTRAZENECA-2010SE60615

PATIENT
  Sex: Female

DRUGS (1)
  1. SYMBICORT [Suspect]
     Route: 055
     Dates: start: 20100410, end: 20100901

REACTIONS (13)
  - TONGUE DISORDER [None]
  - PAIN [None]
  - PYREXIA [None]
  - HEARING IMPAIRED [None]
  - GASTROOESOPHAGEAL REFLUX DISEASE [None]
  - HYPERSENSITIVITY [None]
  - CHILLS [None]
  - APHAGIA [None]
  - GLOSSODYNIA [None]
  - DYSPHAGIA [None]
  - EYE DISORDER [None]
  - DIABETES MELLITUS [None]
  - TONGUE ULCERATION [None]
